FAERS Safety Report 16053336 (Version 1)
Quarter: 2019Q1

REPORT INFORMATION
  Report Type: Spontaneous
  Country: FR (occurrence: FR)
  Receive Date: 20190308
  Receipt Date: 20190308
  Transmission Date: 20190418
  Serious: Yes (Hospitalization)
  Sender: FDA-Public Use
  Company Number: FR-MYLANLABS-2019M1021127

PATIENT
  Age: 67 Year
  Sex: Female
  Weight: 63 kg

DRUGS (14)
  1. BACTRIM [Concomitant]
     Active Substance: SULFAMETHOXAZOLE\TRIMETHOPRIM
  2. DEXAMETHASONE MYLAN [Suspect]
     Active Substance: DEXAMETHASONE
     Indication: PLASMA CELL MYELOMA
     Dosage: 40 MILLIGRAM, CYCLE
     Route: 042
     Dates: start: 20180109, end: 20180120
  3. INEXIUM                            /01479302/ [Concomitant]
     Active Substance: ESOMEPRAZOLE MAGNESIUM
  4. ACUPAN [Concomitant]
     Active Substance: NEFOPAM HYDROCHLORIDE
  5. FOLINATE DE CALCIUM [Concomitant]
     Active Substance: LEUCOVORIN CALCIUM
  6. MORPHINE [Concomitant]
     Active Substance: MORPHINE
  7. REVLIMID [Suspect]
     Active Substance: LENALIDOMIDE
     Indication: PLASMA CELL MYELOMA
     Route: 048
     Dates: start: 20180109, end: 20180123
  8. ZOVIRAX [Concomitant]
     Active Substance: ACYCLOVIR
  9. LORAMYC [Concomitant]
     Active Substance: MICONAZOLE
  10. LOVENOX [Concomitant]
     Active Substance: ENOXAPARIN SODIUM
  11. ALKERAN [Suspect]
     Active Substance: MELPHALAN
     Indication: BONE MARROW CONDITIONING REGIMEN
     Route: 042
     Dates: start: 20180205, end: 20180205
  12. VELCADE [Suspect]
     Active Substance: BORTEZOMIB
     Indication: PLASMA CELL MYELOMA
     Dosage: 2.3 MILLIGRAM, CYCLE
     Route: 042
     Dates: start: 20180109, end: 20180120
  13. ZOPHREN                            /00955301/ [Concomitant]
     Active Substance: ONDANSETRON
  14. TIORFAN [Concomitant]
     Active Substance: RACECADOTRIL

REACTIONS (2)
  - Mucosal inflammation [Recovered/Resolved]
  - Infection in an immunocompromised host [Recovered/Resolved]

NARRATIVE: CASE EVENT DATE: 20180209
